FAERS Safety Report 5214809-8 (Version None)
Quarter: 2007Q1

REPORT INFORMATION
  Report Type: 
  Country: None (occurrence: None)
  Receive Date: 20070122
  Receipt Date: 20070115
  Transmission Date: 20070707
  Serious: Yes (Hospitalization)
  Sender: FDA-Public Use
  Company Number: AU-BOEHRINGER INGELHEIM PHARMACEUTICALS, INC.-2007-BP-00704AU

PATIENT
  Sex: Female

DRUGS (21)
  1. MOBIC [Suspect]
  2. DIAMICRON [Suspect]
  3. LASIX [Suspect]
  4. DIABEX [Suspect]
     Route: 048
  5. ARIMIDEX [Concomitant]
  6. CIPRAMIL (CITALOPRAM) [Concomitant]
  7. FOSAMAX [Concomitant]
  8. GLUCOBAY [Concomitant]
  9. LIPITOR [Concomitant]
  10. LOMOTIL [Concomitant]
  11. PANAMAX [Concomitant]
  12. PARIET [Concomitant]
  13. STEMETIL (PROCHLORPROMAZINE) [Concomitant]
  14. TEMAZEPAM [Concomitant]
  15. WARFARIN SODIUM [Concomitant]
  16. ASPIRIN [Concomitant]
  17. NEOCYTAMEN (HYDROXOCOBALAMIN) [Concomitant]
  18. NASONEX [Concomitant]
  19. TIMOPTIC [Concomitant]
  20. XALATAN [Concomitant]
  21. NITROLINGUAL [Concomitant]

REACTIONS (3)
  - HYPOGLYCAEMIA [None]
  - METABOLIC ACIDOSIS [None]
  - RENAL FAILURE [None]
